FAERS Safety Report 16036137 (Version 5)
Quarter: 2024Q3

REPORT INFORMATION
  Report Type: Spontaneous
  Country: DE (occurrence: DE)
  Receive Date: 20190305
  Receipt Date: 20240927
  Transmission Date: 20241016
  Serious: Yes (Hospitalization, Disabling, Other)
  Sender: MYLAN
  Company Number: DE-TORRENT-00009123

PATIENT
  Age: 52 Year
  Sex: Female

DRUGS (23)
  1. TACROLIMUS [Suspect]
     Active Substance: TACROLIMUS
     Indication: Prophylaxis against transplant rejection
     Dosage: INITIAL TARGET TROUGH LEVEL 8?10 AND 6?7 NG/MICROLITRES
     Route: 065
     Dates: end: 201305
  2. TACROLIMUS [Suspect]
     Active Substance: TACROLIMUS
     Indication: Immunosuppressant drug therapy
     Dosage: TARGET TROUGH LEVEL 3-4 NG/MICROLITRE
     Route: 065
     Dates: start: 201309, end: 201312
  3. TACROLIMUS [Suspect]
     Active Substance: TACROLIMUS
     Dosage: UNK
     Route: 065
     Dates: start: 201306, end: 201308
  4. EVEROLIMUS [Suspect]
     Active Substance: EVEROLIMUS
     Indication: Immunosuppressant drug therapy
     Dosage: TARGET TROUGH LEVEL 2-3 NG/MICROLITRE
     Route: 065
     Dates: start: 201309, end: 201312
  5. CASPOFUNGIN [Suspect]
     Active Substance: CASPOFUNGIN
     Indication: Product used for unknown indication
     Dosage: UNK
     Route: 065
     Dates: start: 201307
  6. PREDNISOLONE [Suspect]
     Active Substance: PREDNISOLONE
     Indication: Prophylaxis against transplant rejection
     Dosage: 1000 MILLIGRAM(INTRAOPERATIVELY)
     Route: 065
  7. PREDNISOLONE [Suspect]
     Active Substance: PREDNISOLONE
     Indication: Immunosuppressant drug therapy
     Dosage: TAPERED DOWN TO MAINTENANCE DOSE OF 5 MG/D
     Route: 065
     Dates: end: 201305
  8. PREDNISOLONE [Suspect]
     Active Substance: PREDNISOLONE
     Dosage: 250 MILLIGRAM, QD
     Route: 065
     Dates: start: 201310, end: 201310
  9. PREDNISOLONE [Suspect]
     Active Substance: PREDNISOLONE
     Dosage: UNK (FOR 3 DAYS)
     Route: 065
  10. PREDNISOLONE [Suspect]
     Active Substance: PREDNISOLONE
     Dosage: 1000 INTERNATIONAL UNIT (INTRAOPERATIVELY)
     Route: 065
  11. MYCOPHENOLATE MOFETIL [Suspect]
     Active Substance: MYCOPHENOLATE MOFETIL
     Indication: Immunosuppressant drug therapy
     Dosage: 2000 MILLIGRAM, QD
     Route: 065
     Dates: end: 201305
  12. MYCOPHENOLATE MOFETIL [Suspect]
     Active Substance: MYCOPHENOLATE MOFETIL
     Indication: Prophylaxis against transplant rejection
     Dosage: UNK
     Route: 065
  13. ALEMTUZUMAB [Suspect]
     Active Substance: ALEMTUZUMAB
     Indication: Immunosuppressant drug therapy
     Dosage: 30 MILLIGRAM D 0 AND 1
     Route: 065
     Dates: end: 201305
  14. ALEMTUZUMAB [Suspect]
     Active Substance: ALEMTUZUMAB
     Indication: Prophylaxis against transplant rejection
  15. FOSCARNET SODIUM [Suspect]
     Active Substance: FOSCARNET SODIUM
     Indication: Antiviral prophylaxis
     Dosage: 180 MILLIGRAM/KILOGRAM, QD
     Route: 065
     Dates: start: 201309
  16. INFLIXIMAB [Suspect]
     Active Substance: INFLIXIMAB
     Indication: Immunosuppressant drug therapy
     Dosage: 5 MILLIGRAM/KILOGRAM, ONCE
     Route: 042
     Dates: start: 201310
  17. GANCICLOVIR [Suspect]
     Active Substance: GANCICLOVIR
     Indication: Antiviral prophylaxis
     Dosage: 5 MILLIGRAM/KILOGRAM, QD
     Route: 042
  18. GANCICLOVIR [Suspect]
     Active Substance: GANCICLOVIR
     Indication: Cytomegalovirus infection
     Dosage: UNK
     Route: 042
     Dates: start: 201307, end: 201312
  19. VALGANCICLOVIR [Suspect]
     Active Substance: VALGANCICLOVIR
     Indication: Antiviral prophylaxis
     Dosage: UNK
     Route: 065
     Dates: start: 201307
  20. VALGANCICLOVIR [Suspect]
     Active Substance: VALGANCICLOVIR
     Indication: Cytomegalovirus infection
     Dosage: UNK
     Route: 065
     Dates: start: 201312
  21. VALGANCICLOVIR [Suspect]
     Active Substance: VALGANCICLOVIR
     Dosage: 900 MILLIGRAM, QD
     Route: 065
  22. VALGANCICLOVIR [Suspect]
     Active Substance: VALGANCICLOVIR
     Dosage: UNK (FOR 100 DAYS)
     Route: 065
  23. GANCICLOVIR [Concomitant]
     Active Substance: GANCICLOVIR
     Indication: Antiviral prophylaxis
     Dosage: UNK
     Route: 042
     Dates: start: 201307, end: 201312

REACTIONS (14)
  - Cytomegalovirus oesophagitis [Recovered/Resolved]
  - Oesophageal candidiasis [Unknown]
  - Cytomegalovirus gastritis [Unknown]
  - Cytomegalovirus infection [Unknown]
  - Leukaemia [Unknown]
  - Odynophagia [Unknown]
  - Vomiting [Unknown]
  - Transplant rejection [Unknown]
  - Organ failure [Unknown]
  - Pyrexia [Unknown]
  - Cytomegalovirus gastroenteritis [Unknown]
  - Oesophagitis ulcerative [Unknown]
  - Diarrhoea [Unknown]
  - Drug ineffective [Unknown]
